FAERS Safety Report 13007085 (Version 2)
Quarter: 2016Q4

REPORT INFORMATION
  Report Type: Spontaneous
  Country: RU (occurrence: RU)
  Receive Date: 20161207
  Receipt Date: 20161207
  Transmission Date: 20170207
  Serious: Yes (Other)
  Sender: FDA-Public Use
  Company Number: RU-SA-2016SA168009

PATIENT
  Age: 25 Year
  Sex: Female
  Weight: 80 kg

DRUGS (6)
  1. IODOMARIN [Concomitant]
     Active Substance: POTASSIUM IODIDE
     Route: 048
     Dates: start: 201605
  2. VITAMINS [Concomitant]
     Active Substance: VITAMINS
     Route: 048
     Dates: start: 201605
  3. CLEXANE [Suspect]
     Active Substance: ENOXAPARIN SODIUM
     Indication: BLEEDING TIME ABNORMAL
     Dosage: DOSE AND FREQUENCY: 0.6
     Route: 058
  4. CLEXANE [Suspect]
     Active Substance: ENOXAPARIN SODIUM
     Indication: BLEEDING TIME ABNORMAL
     Dosage: DOSE AND FREQUENCY: 0.4 TWICE PER DAY
     Route: 058
  5. CLEXANE [Suspect]
     Active Substance: ENOXAPARIN SODIUM
     Indication: BLEEDING TIME ABNORMAL
     Dosage: DOSE AND FREQUENCY: 0.4
     Route: 058
  6. FOLIBER [Concomitant]
     Dosage: DOSE AND FREQUENCY:2 MCG + 400 MCG PER DAY.
     Route: 048
     Dates: start: 201605

REACTIONS (4)
  - Product quality issue [Unknown]
  - Exposure during pregnancy [Unknown]
  - Polyhydramnios [Unknown]
  - Oedema [Unknown]
